FAERS Safety Report 25439973 (Version 1)
Quarter: 2025Q2

REPORT INFORMATION
  Report Type: Spontaneous
  Country: US (occurrence: None)
  Receive Date: 20250613
  Receipt Date: 20250613
  Transmission Date: 20250716
  Serious: Yes (Hospitalization)
  Sender: FDA-CTU
  Company Number: None

PATIENT
  Age: 33 Year
  Sex: Female

DRUGS (1)
  1. NIACINAMIDE\TIRZEPATIDE [Suspect]
     Active Substance: NIACINAMIDE\TIRZEPATIDE
     Indication: Weight control
     Route: 058
     Dates: start: 20250228, end: 20250422

REACTIONS (3)
  - Product administration error [None]
  - Incorrect dose administered [None]
  - Drug-induced liver injury [None]

NARRATIVE: CASE EVENT DATE: 20250422
